FAERS Safety Report 4943453-2 (Version None)
Quarter: 2006Q1

REPORT INFORMATION
  Report Type: 
  Country: None (occurrence: None)
  Receive Date: 20060309
  Receipt Date: 20060224
  Transmission Date: 20060701
  Serious: Yes (Other)
  Sender: FDA-Public Use
  Company Number: 2006028032

PATIENT
  Age: 70 Year
  Sex: Male

DRUGS (9)
  1. VIAGRA [Suspect]
     Indication: ILL-DEFINED DISORDER
  2. ATENOLOL [Concomitant]
  3. LISINOPRIL [Concomitant]
  4. COZAAR [Concomitant]
  5. NIFEDIPINE [Concomitant]
  6. CARDURA [Concomitant]
  7. GLYBURIDE [Concomitant]
  8. METFORMIN HCL [Concomitant]
  9. VITAMINS (VITAMINS) [Concomitant]

REACTIONS (7)
  - BLOOD TESTOSTERONE DECREASED [None]
  - DRUG INEFFECTIVE [None]
  - ERECTILE DYSFUNCTION [None]
  - NOCTURIA [None]
  - POLLAKIURIA [None]
  - PROSTATIC OPERATION [None]
  - XANTHOPSIA [None]
